FAERS Safety Report 25085405 (Version 2)
Quarter: 2025Q2

REPORT INFORMATION
  Report Type: Spontaneous
  Country: US (occurrence: US)
  Receive Date: 20250317
  Receipt Date: 20250507
  Transmission Date: 20250717
  Serious: Yes (Hospitalization, Other)
  Sender: SANOFI AVENTIS
  Company Number: US-SA-2025SA074483

PATIENT
  Age: 62 Year
  Sex: Male

DRUGS (2)
  1. REZUROCK [Suspect]
     Active Substance: BELUMOSUDIL
     Indication: Chronic graft versus host disease
     Dosage: 200 MG, BID
     Route: 048
     Dates: start: 20250312
  2. ELIQUIS [Concomitant]
     Active Substance: APIXABAN

REACTIONS (4)
  - Neuropathy peripheral [Unknown]
  - Hospitalisation [Unknown]
  - Muscular weakness [Unknown]
  - Inappropriate schedule of product administration [Unknown]

NARRATIVE: CASE EVENT DATE: 20250101
